FAERS Safety Report 16136161 (Version 2)
Quarter: 2019Q2

REPORT INFORMATION
  Report Type: Spontaneous
  Country: GB (occurrence: GB)
  Receive Date: 20190329
  Receipt Date: 20190429
  Transmission Date: 20190711
  Serious: Yes (Other)
  Sender: FDA-Public Use
  Company Number: GB-ELI_LILLY_AND_COMPANY-GB201903005025

PATIENT
  Age: 55 Year
  Sex: Female

DRUGS (4)
  1. ESTROGEN [Suspect]
     Active Substance: ESTROGENS
     Indication: PRODUCT USED FOR UNKNOWN INDICATION
     Dosage: UNK UNK, UNKNOWN
     Route: 065
  2. FLUOXETINE [Suspect]
     Active Substance: FLUOXETINE HYDROCHLORIDE
     Dosage: 60 MG, UNKNOWN
     Route: 065
  3. FLUOXETINE [Suspect]
     Active Substance: FLUOXETINE HYDROCHLORIDE
     Indication: PRODUCT USED FOR UNKNOWN INDICATION
     Dosage: 20 MG, UNKNOWN
     Route: 065
     Dates: start: 2016
  4. COCODAMOL [Suspect]
     Active Substance: ACETAMINOPHEN\CODEINE PHOSPHATE
     Indication: PRODUCT USED FOR UNKNOWN INDICATION
     Dosage: 500 MG, UNKNOWN
     Route: 065

REACTIONS (17)
  - Tinnitus [Unknown]
  - Stress [Unknown]
  - Hyperhidrosis [Unknown]
  - Social avoidant behaviour [Unknown]
  - Limb mass [Unknown]
  - Dyspnoea [Unknown]
  - Weight decreased [Unknown]
  - Decreased appetite [Unknown]
  - Psychiatric symptom [Unknown]
  - Anger [Unknown]
  - Feeling of despair [Unknown]
  - Fatigue [Unknown]
  - Insomnia [Unknown]
  - Anxiety [Unknown]
  - Fear [Unknown]
  - Inappropriate affect [Unknown]
  - Suicidal ideation [Unknown]

NARRATIVE: CASE EVENT DATE: 201812
